FAERS Safety Report 8283174-4 (Version None)
Quarter: 2012Q2

REPORT INFORMATION
  Report Type: 
  Country: None (occurrence: None)
  Receive Date: 20120413
  Receipt Date: 20120403
  Transmission Date: 20120825
  Serious: Yes (Hospitalization, Other)
  Sender: FDA-Public Use
  Company Number: CA-JNJFOC-20120402406

PATIENT
  Sex: Female
  Weight: 64 kg

DRUGS (5)
  1. ROBAXACET [Concomitant]
     Route: 065
  2. IBUPROFEN [Concomitant]
     Route: 065
  3. OXYCONTIN [Concomitant]
     Route: 065
  4. POTASSIUM CHLORIDE [Concomitant]
     Route: 065
  5. REMICADE [Suspect]
     Indication: CROHN'S DISEASE
     Route: 042

REACTIONS (2)
  - VOMITING [None]
  - ABSCESS [None]
